FAERS Safety Report 20538894 (Version 1)
Quarter: 2022Q1

REPORT INFORMATION
  Report Type: Spontaneous
  Country: US (occurrence: None)
  Receive Date: 20220302
  Receipt Date: 20220302
  Transmission Date: 20220423
  Serious: Yes (Hospitalization)
  Sender: FDA-Public Use
  Company Number: None

PATIENT
  Age: 57 Year
  Sex: Female

DRUGS (9)
  1. BOTOX [Suspect]
     Active Substance: ONABOTULINUMTOXINA
     Indication: Torticollis
     Dosage: 100 UNIT  INJECTION??INJECT 255-300 UNITS IN THE MUSCLE EVERY 3 MONTHS
     Dates: start: 20200226
  2. BOTOX INJ 100UNIT [Concomitant]
  3. DULOXETINE CAP 60MG [Concomitant]
  4. HUMIRA [Concomitant]
     Active Substance: ADALIMUMAB
  5. LEUCOVOR CA TAB 5MG [Concomitant]
  6. LEVOCETIRIZI TAB 5MG [Concomitant]
  7. METHOTREXATE [Concomitant]
     Active Substance: METHOTREXATE
  8. RELAFEN TAB 750MG [Concomitant]
  9. TRAZODONE [Concomitant]
     Active Substance: TRAZODONE HYDROCHLORIDE

REACTIONS (2)
  - Joint arthroplasty [None]
  - Temporomandibular joint syndrome [None]

NARRATIVE: CASE EVENT DATE: 20211001
